FAERS Safety Report 9041813 (Version 1)
Quarter: 2013Q1

REPORT INFORMATION
  Report Type: Report from Study
  Country: US (occurrence: US)
  Receive Date: 20130129
  Receipt Date: 20130129
  Transmission Date: 20140127
  Serious: No
  Sender: FDA-Public Use
  Company Number: US-ABBOTT-12P-163-0894766-00

PATIENT
  Age: 45 Year
  Sex: Male

DRUGS (11)
  1. HUMIRA 40 MG/0.8 ML PEN [Suspect]
     Indication: CROHN^S DISEASE
     Dates: start: 20111118
  2. PENTASA [Concomitant]
     Indication: PRODUCT USED FOR UNKNOWN INDICATION
  3. LYRICA [Concomitant]
     Indication: BACK PAIN
  4. FLEXERIL [Concomitant]
     Indication: BACK PAIN
  5. PAXIL [Concomitant]
     Indication: OBSESSIVE-COMPULSIVE DISORDER
  6. PAXIL [Concomitant]
     Indication: ANXIETY
  7. RISPERDAL [Concomitant]
     Indication: OBSESSIVE-COMPULSIVE DISORDER
  8. RISPERDAL [Concomitant]
     Indication: ANXIETY
  9. LAMICTAL [Concomitant]
     Indication: OBSESSIVE-COMPULSIVE DISORDER
  10. LAMICTAL [Concomitant]
     Indication: ANXIETY
  11. XANAX [Concomitant]
     Indication: PRODUCT USED FOR UNKNOWN INDICATION
     Dosage: AT BEDTIME

REACTIONS (7)
  - Injection site bruising [Recovering/Resolving]
  - Back pain [Unknown]
  - Back pain [Not Recovered/Not Resolved]
  - Abdominal pain [Recovered/Resolved]
  - Diarrhoea [Recovered/Resolved]
  - Nausea [Recovered/Resolved]
  - Fatigue [Not Recovered/Not Resolved]
